FAERS Safety Report 18697591 (Version 1)
Quarter: 2021Q1

REPORT INFORMATION
  Report Type: Spontaneous
  Country: UA (occurrence: UA)
  Receive Date: 20210104
  Receipt Date: 20210104
  Transmission Date: 20210419
  Serious: Yes (Death, Hospitalization, Other)
  Sender: FDA-Public Use
  Company Number: UA-MYLANLABS-2020M1105714

PATIENT
  Sex: Male
  Weight: 60 kg

DRUGS (6)
  1. DOVPRELA [Suspect]
     Active Substance: PRETOMANID
     Dosage: 200 MILLIGRAM, QD
     Route: 048
     Dates: start: 20201204, end: 20201215
  2. SIRTURO [Suspect]
     Active Substance: BEDAQUILINE FUMARATE
     Indication: TUBERCULOSIS
     Dosage: (0,4/0.2)
     Dates: start: 2009
  3. DOVPRELA [Suspect]
     Active Substance: PRETOMANID
     Indication: TUBERCULOSIS
     Dosage: (0.2)
     Dates: start: 2009
  4. LINEZID [Suspect]
     Active Substance: LINEZOLID
     Indication: TUBERCULOSIS
     Dosage: (1.2)
     Dates: start: 2009
  5. LINEZID [Suspect]
     Active Substance: LINEZOLID
     Dosage: 1200 MILLIGRAM, QD
     Route: 048
     Dates: start: 20201204, end: 20201215
  6. SIRTURO [Suspect]
     Active Substance: BEDAQUILINE FUMARATE
     Dosage: 400 MILLIGRAM, QD
     Route: 048
     Dates: start: 20201204, end: 20201215

REACTIONS (3)
  - Nephrotic syndrome [Not Recovered/Not Resolved]
  - Pancreatitis [Not Recovered/Not Resolved]
  - Cardiopulmonary failure [Fatal]
